FAERS Safety Report 9271138 (Version 1)
Quarter: 2013Q2

REPORT INFORMATION
  Report Type: Spontaneous
  Country: PT (occurrence: PT)
  Receive Date: 20130506
  Receipt Date: 20130506
  Transmission Date: 20140414
  Serious: Yes (Hospitalization)
  Sender: FDA-Public Use
  Company Number: PHHY2013PT042380

PATIENT
  Age: 47 Year
  Sex: Female

DRUGS (2)
  1. VOLTAREN [Suspect]
     Indication: MUSCULOSKELETAL PAIN
     Dosage: UNK UKN, UNK
     Route: 030
     Dates: start: 201103, end: 201103
  2. RELMUS [Suspect]
     Indication: MUSCULOSKELETAL PAIN
     Dosage: UNK UKN, UNK
     Route: 030
     Dates: start: 201103, end: 201103

REACTIONS (5)
  - Asphyxia [Recovered/Resolved]
  - Stridor [Recovered/Resolved]
  - Aphonia [Recovered/Resolved]
  - Face oedema [Recovered/Resolved]
  - Pruritus generalised [Recovered/Resolved]
